FAERS Safety Report 17610382 (Version 4)
Quarter: 2020Q4

REPORT INFORMATION
  Report Type: Spontaneous
  Country: US (occurrence: US)
  Receive Date: 20200401
  Receipt Date: 20201204
  Transmission Date: 20210113
  Serious: No
  Sender: FDA-Public Use
  Company Number: US-PFIZER INC-2020131960

PATIENT
  Age: 57 Year
  Sex: Female

DRUGS (2)
  1. EUCRISA [Suspect]
     Active Substance: CRISABOROLE
     Dosage: UNK UNK, 2X/DAY
     Route: 061
     Dates: start: 20191014
  2. EUCRISA [Suspect]
     Active Substance: CRISABOROLE
     Dosage: UNK, SOMETIMES FOR SMALL AREAS

REACTIONS (2)
  - Drug ineffective [Unknown]
  - Off label use [Unknown]
